FAERS Safety Report 12225514 (Version 2)
Quarter: 2016Q2

REPORT INFORMATION
  Report Type: Spontaneous
  Country: US (occurrence: US)
  Receive Date: 20160331
  Receipt Date: 20160411
  Transmission Date: 20160815
  Serious: Yes (Death)
  Sender: FDA-Public Use
  Company Number: US-MYLANLABS-2016M1013456

PATIENT

DRUGS (8)
  1. DEPAKOTE [Suspect]
     Active Substance: DIVALPROEX SODIUM
     Dosage: 500 MG/DAY
     Route: 065
     Dates: start: 2010
  2. CITALOPRAM [Suspect]
     Active Substance: CITALOPRAM HYDROBROMIDE
     Dosage: 60 MG/DAY
     Route: 065
     Dates: start: 201101
  3. NADOLOL. [Concomitant]
     Active Substance: NADOLOL
     Indication: HYPERTENSION
     Dosage: 200 MG/DAY
     Route: 065
  4. DEPAKOTE [Suspect]
     Active Substance: DIVALPROEX SODIUM
     Dosage: 1000 MG/DAY
     Route: 065
     Dates: start: 201101
  5. WELLBUTRIN [Concomitant]
     Active Substance: BUPROPION HYDROCHLORIDE
     Dosage: 200 MG/DAY
     Route: 065
     Dates: end: 201101
  6. DEPAKOTE [Suspect]
     Active Substance: DIVALPROEX SODIUM
     Indication: MIGRAINE
     Dosage: 250 MG/DAY
     Route: 065
     Dates: start: 200907
  7. CITALOPRAM [Suspect]
     Active Substance: CITALOPRAM HYDROBROMIDE
     Indication: DEPRESSION
     Dosage: 40 MG/DAY
     Route: 065
  8. MOBIC [Suspect]
     Active Substance: MELOXICAM
     Indication: MIGRAINE
     Dosage: 15 MG/DAY
     Route: 065

REACTIONS (4)
  - Toxicity to various agents [Fatal]
  - Liver injury [Fatal]
  - Long QT syndrome [Fatal]
  - Arrhythmia [Fatal]

NARRATIVE: CASE EVENT DATE: 201105
